FAERS Safety Report 5765908-3 (Version None)
Quarter: 2008Q2

REPORT INFORMATION
  Report Type: 
  Country: None (occurrence: None)
  Receive Date: 20080611
  Receipt Date: 20070501
  Transmission Date: 20081010
  Serious: No
  Sender: FDA-Public Use
  Company Number: US-BRISTOL-MYERS SQUIBB COMPANY-13779350

PATIENT
  Age: 7 Decade
  Sex: Female

DRUGS (1)
  1. CARBIDOPA + LEVODOPA TABS 25MG/250MG [Suspect]
     Indication: PARKINSON'S DISEASE
     Route: 048
     Dates: start: 20070401

REACTIONS (2)
  - EXOPHTHALMOS [None]
  - MUSCLE TWITCHING [None]
